FAERS Safety Report 5335945-1 (Version None)
Quarter: 2007Q2

REPORT INFORMATION
  Report Type: 
  Country: None (occurrence: None)
  Receive Date: 20070302
  Receipt Date: 20061114
  Transmission Date: 20071010
  Serious: No
  Sender: FDA-Public Use
  Company Number: PHEH2006US11880

PATIENT
  Age: 59 Year
  Sex: Male
  Weight: 73.5 kg

DRUGS (5)
  1. EXJADE [Suspect]
     Indication: HAEMOSIDEROSIS
     Dosage: 2000 MG QD ORAL
     Route: 048
     Dates: start: 20060118, end: 20060918
  2. ARANESP [Concomitant]
  3. COUMADIN [Concomitant]
  4. THALIDOMIDE [Concomitant]
  5. DILTIAZEM [Concomitant]

REACTIONS (3)
  - ASTHENIA [None]
  - FATIGUE [None]
  - WEIGHT DECREASED [None]
